FAERS Safety Report 22319256 (Version 1)
Quarter: 2023Q2

REPORT INFORMATION
  Report Type: Spontaneous
  Country: US (occurrence: None)
  Receive Date: 20230515
  Receipt Date: 20230515
  Transmission Date: 20230722
  Serious: Yes (Hospitalization)
  Sender: FDA-Public Use
  Company Number: US-FARMAPROD-202305-1279

PATIENT
  Sex: Female

DRUGS (20)
  1. OXERVATE [Suspect]
     Active Substance: CENEGERMIN-BKBJ
     Indication: Neurotrophic keratopathy
     Route: 047
     Dates: start: 20230417
  2. SOOTHE LUBRICANT [Concomitant]
  3. ERYTHROMYCIN [Concomitant]
     Active Substance: ERYTHROMYCIN
  4. ACETAMINOPHEN [Concomitant]
     Active Substance: ACETAMINOPHEN
  5. TYLENOL ARTHRITIS PAIN [Concomitant]
     Active Substance: ACETAMINOPHEN
  6. VITAMIN D3 [Concomitant]
     Active Substance: CHOLECALCIFEROL
  7. TOBRAMYCIN/VANCOMYCIN [Concomitant]
  8. VANCOMYCIN HYDROCHLORIDE [Concomitant]
     Active Substance: VANCOMYCIN HYDROCHLORIDE
     Dosage: SOLUTION RECONSTITUTED
  9. SERTRALINE HYDROCHLORIDE [Concomitant]
     Active Substance: SERTRALINE HYDROCHLORIDE
  10. POTASSIUM CHLORIDE [Concomitant]
     Active Substance: POTASSIUM CHLORIDE
  11. PIOGLITAZONE [Concomitant]
     Active Substance: PIOGLITAZONE
  12. MYRBETRIQ [Concomitant]
     Active Substance: MIRABEGRON
     Dosage: EXTENDED RELEASE 24 HOURS
  13. MONTELUKAST SODIUM [Concomitant]
     Active Substance: MONTELUKAST SODIUM
  14. GLIMEPIRIDE [Concomitant]
     Active Substance: GLIMEPIRIDE
  15. FUROSEMIDE [Concomitant]
     Active Substance: FUROSEMIDE
  16. FAMOTIDINE [Concomitant]
     Active Substance: FAMOTIDINE
  17. ELIQUIS [Concomitant]
     Active Substance: APIXABAN
  18. ATORVASTATIN CALCIUM [Concomitant]
     Active Substance: ATORVASTATIN CALCIUM
  19. ALPRAZOLAM [Concomitant]
     Active Substance: ALPRAZOLAM
  20. VICTOZA [Concomitant]
     Active Substance: LIRAGLUTIDE
     Dosage: 3-PAK 0.6 MG/0.1 PEN INJECTOR,

REACTIONS (1)
  - Hospitalisation [Unknown]
